FAERS Safety Report 9938859 (Version 1)
Quarter: 2014Q1

REPORT INFORMATION
  Report Type: Report from Study
  Country: US (occurrence: US)
  Receive Date: 20140303
  Receipt Date: 20140303
  Transmission Date: 20141002
  Serious: No
  Sender: FDA-Public Use
  Company Number: US-ABBVIE-13P-163-1035424-00

PATIENT
  Age: 58 Year
  Sex: Female
  Weight: 68.1 kg

DRUGS (5)
  1. HUMIRA [Suspect]
     Indication: PSORIASIS
     Dates: end: 201206
  2. HUMIRA [Suspect]
     Indication: PSORIATIC ARTHROPATHY
     Dates: start: 201206
  3. HUMIRA [Suspect]
     Indication: PUSTULAR PSORIASIS
  4. PROZAC [Concomitant]
     Indication: DEPRESSION
  5. TRAZODONE [Concomitant]
     Indication: INSOMNIA

REACTIONS (8)
  - Off label use [Not Recovered/Not Resolved]
  - Influenza [Recovering/Resolving]
  - Pustular psoriasis [Not Recovered/Not Resolved]
  - Psoriasis [Recovered/Resolved]
  - Eye swelling [Not Recovered/Not Resolved]
  - Psoriasis [Not Recovered/Not Resolved]
  - Pain of skin [Not Recovered/Not Resolved]
  - Skin hypertrophy [Not Recovered/Not Resolved]
